FAERS Safety Report 9093160 (Version 1)
Quarter: 2013Q1

REPORT INFORMATION
  Report Type: Spontaneous
  Country: US (occurrence: None)
  Receive Date: 20130122
  Receipt Date: 20130122
  Transmission Date: 20140127
  Serious: Yes (Death)
  Sender: FDA-Public Use
  Company Number: 1553107

PATIENT
  Age: 39 Year
  Sex: Male

DRUGS (8)
  1. LORAZEPAM [Suspect]
  2. ACETAMINOPHEN AND DIPHENHYDRAMINE HCL [Suspect]
  3. ALPRAZOLAM [Suspect]
  4. ETHANOL [Suspect]
  5. ANDROGENS [Suspect]
  6. NANDROLONE [Suspect]
  7. METAXALONE [Suspect]
  8. IBUPROFEN [Suspect]

REACTIONS (4)
  - Completed suicide [None]
  - Toxicity to various agents [None]
  - Self-medication [None]
  - Potentiating drug interaction [None]
